FAERS Safety Report 6539073-9 (Version None)
Quarter: 2010Q1

REPORT INFORMATION
  Report Type: 
  Country: None (occurrence: None)
  Receive Date: 20100115
  Receipt Date: 20100106
  Transmission Date: 20100710
  Serious: Yes (Hospitalization, Other)
  Sender: FDA-Public Use
  Company Number: PHHY2009CA30890

PATIENT
  Sex: Male

DRUGS (5)
  1. DIOVAN [Suspect]
     Indication: BLOOD PRESSURE SYSTOLIC ABNORMAL
     Dosage: 1 TABLET (80 MG) PER DAY AT NIGHT OR HALF TABLET (80 MG) PER DAY AT NIGHT
     Route: 048
     Dates: start: 20090616
  2. DIOVAN [Suspect]
     Dosage: 160 MG
     Route: 048
  3. SYNTHROID [Concomitant]
  4. METOPROLOL [Concomitant]
     Dosage: 25 MG, BID (MORNING AND NIGHT)
  5. PLAVIX [Concomitant]

REACTIONS (15)
  - ABDOMINAL DISCOMFORT [None]
  - BLOOD PRESSURE INCREASED [None]
  - BREAST PAIN [None]
  - DIZZINESS [None]
  - DRUG INEFFECTIVE [None]
  - FATIGUE [None]
  - HEADACHE [None]
  - HEART RATE DECREASED [None]
  - HYPOTENSION [None]
  - MUSCULOSKELETAL PAIN [None]
  - PAIN IN EXTREMITY [None]
  - PARAESTHESIA [None]
  - SOMNOLENCE [None]
  - STENT PLACEMENT [None]
  - VISION BLURRED [None]
